FAERS Safety Report 18567509 (Version 1)
Quarter: 2020Q4

REPORT INFORMATION
  Report Type: Spontaneous
  Country: PH (occurrence: PH)
  Receive Date: 20201201
  Receipt Date: 20201201
  Transmission Date: 20210114
  Serious: Yes (Hospitalization, Other)
  Sender: FDA-Public Use
  Company Number: PH-MICRO LABS LIMITED-ML2020-03504

PATIENT
  Sex: Female

DRUGS (4)
  1. ESCITALOPRAM [Suspect]
     Active Substance: ESCITALOPRAM OXALATE
     Indication: DEPRESSION
  2. ALCOHOL CONTAINING HOMEOPATHIC MEDICINE [Suspect]
     Active Substance: HOMEOPATHICS
     Dosage: TOOK 15 DROPS IN WATER THRICE DAILY INSTEAD OF 5-10 DROPS IN WATER THRICE DAILY
     Route: 048
  3. LEVODOPA/CARBIDOPA [Concomitant]
     Active Substance: CARBIDOPA\LEVODOPA
     Indication: PARKINSON^S DISEASE
     Dosage: 25/100 MG/TAB ONE TABLET FOUR-TIMES A DAY
  4. RASAGILIN [Suspect]
     Active Substance: RASAGILINE MESYLATE
     Indication: PARKINSON^S DISEASE

REACTIONS (3)
  - Serotonin syndrome [Recovering/Resolving]
  - Drug interaction [Unknown]
  - Medication error [Unknown]
